FAERS Safety Report 8398850-2 (Version None)
Quarter: 2012Q2

REPORT INFORMATION
  Report Type: 
  Country: None (occurrence: None)
  Receive Date: 20120531
  Receipt Date: 20120525
  Transmission Date: 20120825
  Serious: Yes (Hospitalization, Other)
  Sender: FDA-Public Use
  Company Number: AU-BAYER-2012-051580

PATIENT
  Age: 53 Year
  Sex: Female

DRUGS (1)
  1. BETASERON [Suspect]
     Indication: MULTIPLE SCLEROSIS
     Dosage: 250 MCG/ML, QOD
     Route: 058
     Dates: start: 19971101

REACTIONS (6)
  - PAIN [None]
  - INJECTION SITE INFLAMMATION [None]
  - GASTROINTESTINAL DISORDER [None]
  - MYOSITIS [None]
  - INJECTION SITE MASS [None]
  - INJECTION SITE PAIN [None]
